FAERS Safety Report 8508585-0 (Version None)
Quarter: 2012Q3

REPORT INFORMATION
  Report Type: 
  Country: None (occurrence: None)
  Receive Date: 20120713
  Receipt Date: 20120710
  Transmission Date: 20120928
  Serious: No
  Sender: FDA-Public Use
  Company Number: US-PFIZER INC-2012165633

PATIENT
  Sex: Male
  Weight: 76.19 kg

DRUGS (2)
  1. ADVIL PM [Suspect]
     Indication: SLEEP DISORDER
     Dosage: UNK, 1X/DAY
     Route: 048
     Dates: start: 20120601
  2. ATENOLOL [Concomitant]
     Indication: HYPERTENSION
     Dosage: UNK

REACTIONS (1)
  - JOINT SWELLING [None]
